FAERS Safety Report 10748250 (Version 1)
Quarter: 2015Q1

REPORT INFORMATION
  Report Type: Spontaneous
  Country: CO (occurrence: CO)
  Receive Date: 20150129
  Receipt Date: 20150129
  Transmission Date: 20150721
  Serious: Yes (Death)
  Sender: FDA-Public Use
  Company Number: CO-UCBSA-2015001584

PATIENT
  Age: 14 Year
  Sex: Male

DRUGS (1)
  1. VIMPAT [Suspect]
     Active Substance: LACOSAMIDE
     Indication: EPILEPSY
     Dosage: 100 MG, 2X/DAY (BID); STRENGTH: 100 MG
     Route: 048
     Dates: start: 20141122, end: 20141222

REACTIONS (1)
  - Death [Fatal]

NARRATIVE: CASE EVENT DATE: 20141222
